FAERS Safety Report 10042775 (Version 4)
Quarter: 2015Q1

REPORT INFORMATION
  Report Type: Spontaneous
  Country: US (occurrence: US)
  Receive Date: 20140327
  Receipt Date: 20150204
  Transmission Date: 20150720
  Serious: Yes (Death, Hospitalization, Other)
  Sender: FDA-Public Use
  Company Number: US-009507513-1403USA012657

PATIENT
  Sex: Male
  Weight: 143.76 kg

DRUGS (1)
  1. PROSCAR [Suspect]
     Active Substance: FINASTERIDE
     Indication: PROSTATIC SPECIFIC ANTIGEN INCREASED
     Dosage: 5 MG, QD
     Route: 048
     Dates: start: 19950318, end: 20020603

REACTIONS (19)
  - Colostomy [Unknown]
  - Hypertonic bladder [Unknown]
  - Radiotherapy [Unknown]
  - Blood thyroid stimulating hormone decreased [Unknown]
  - Abnormal loss of weight [Unknown]
  - Prostate cancer stage II [Unknown]
  - Hernia [Unknown]
  - Gynaecomastia [Unknown]
  - Micturition urgency [Unknown]
  - Sexual dysfunction [Unknown]
  - Libido decreased [Unknown]
  - Urinary retention [Unknown]
  - Coronary arterial stent insertion [Unknown]
  - Goitre [Unknown]
  - Cardiac failure chronic [Fatal]
  - Tibia fracture [Unknown]
  - Abdominal operation [Unknown]
  - Nocturia [Unknown]
  - Thyroid neoplasm [Unknown]

NARRATIVE: CASE EVENT DATE: 2001
